FAERS Safety Report 11992359 (Version 2)
Quarter: 2016Q1

REPORT INFORMATION
  Report Type: Spontaneous
  Country: US (occurrence: US)
  Receive Date: 20160203
  Receipt Date: 20160222
  Transmission Date: 20160526
  Serious: No
  Sender: FDA-Public Use
  Company Number: US-JNJFOC-20160102979

PATIENT
  Age: 76 Year
  Sex: Female
  Weight: 44.91 kg

DRUGS (2)
  1. TYLENOL ARTHRITIS PAIN [Suspect]
     Active Substance: ACETAMINOPHEN
     Indication: ARTHRALGIA
     Dosage: 1 CAPLET 1 TIME
     Route: 048
     Dates: start: 20160104, end: 20160104
  2. TYLENOL ARTHRITIS PAIN [Suspect]
     Active Substance: ACETAMINOPHEN
     Route: 048

REACTIONS (6)
  - Underdose [Recovered/Resolved]
  - Product quality issue [Unknown]
  - Abdominal discomfort [Recovered/Resolved]
  - Head discomfort [Unknown]
  - Abdominal pain upper [Recovered/Resolved]
  - Expired product administered [Recovered/Resolved]

NARRATIVE: CASE EVENT DATE: 20160104
